FAERS Safety Report 14165542 (Version 2)
Quarter: 2017Q4

REPORT INFORMATION
  Report Type: Spontaneous
  Country: DE (occurrence: DE)
  Receive Date: 20171107
  Receipt Date: 20171107
  Transmission Date: 20180321
  Serious: Yes (Other)
  Sender: FDA-Public Use
  Company Number: PHHY2017DE160087

PATIENT
  Sex: Female

DRUGS (4)
  1. DEXASINE SE [Suspect]
     Active Substance: DEXAMETHASONE SODIUM PHOSPHATE
     Indication: OPHTHALMIC HERPES ZOSTER
     Dosage: UNK
     Route: 047
     Dates: start: 201410
  2. DEXASINE SE [Suspect]
     Active Substance: DEXAMETHASONE SODIUM PHOSPHATE
     Indication: INFLAMMATION
  3. DEXASINE SE [Suspect]
     Active Substance: DEXAMETHASONE SODIUM PHOSPHATE
     Indication: OPHTHALMIC HERPES ZOSTER
     Dosage: UNK
     Route: 047
     Dates: start: 201410
  4. DEXASINE SE [Suspect]
     Active Substance: DEXAMETHASONE SODIUM PHOSPHATE
     Indication: INFLAMMATION

REACTIONS (4)
  - Ocular hyperaemia [Unknown]
  - Corneal perforation [Unknown]
  - Eyelid oedema [Unknown]
  - Product use issue [Unknown]
